FAERS Safety Report 9458257 (Version 1)
Quarter: 2013Q3

REPORT INFORMATION
  Report Type: Spontaneous
  Country: AU (occurrence: AU)
  Receive Date: 20130814
  Receipt Date: 20130814
  Transmission Date: 20140515
  Serious: Yes (Other)
  Sender: FDA-Public Use
  Company Number: AU-PFIZER INC-2013233207

PATIENT
  Age: 72 Year
  Sex: Male

DRUGS (8)
  1. GENTAMICIN SULFATE [Suspect]
     Dosage: 180 MG, 1X/DAY
     Dates: start: 20010226, end: 20010324
  2. VANCOMYCIN HCL [Suspect]
     Dosage: 2 G, DAILY
     Dates: start: 20010226, end: 20010322
  3. FRUSEMIDE [Concomitant]
     Dosage: 40 MG, 1X/DAY
  4. HEPARIN SODIUM [Concomitant]
     Dosage: 50 IU, 1X/DAY
     Dates: start: 20010304
  5. IRBESARTAN [Concomitant]
     Dosage: 300 MG, 1X/DAY
  6. SLOW-K [Concomitant]
     Dosage: 4 DF, 1X/DAY
  7. TEICOPLANIN [Concomitant]
     Dosage: 800 MG, 1X/DAY
     Dates: start: 20010322, end: 20010401
  8. WARFARIN SODIUM [Concomitant]
     Dosage: 4 MG, 1X/DAY

REACTIONS (5)
  - Renal impairment [Recovered/Resolved]
  - Pruritus [Recovered/Resolved]
  - Purpura [Recovered/Resolved]
  - Pyrexia [Recovered/Resolved]
  - Pain [Recovered/Resolved]
